FAERS Safety Report 26214624 (Version 1)
Quarter: 2025Q4

REPORT INFORMATION
  Report Type: Spontaneous
  Country: GB (occurrence: GB)
  Receive Date: 20251230
  Receipt Date: 20251230
  Transmission Date: 20260118
  Serious: Yes (Hospitalization, Other)
  Sender: PFIZER
  Company Number: GB-MLMSERVICE-20251212-PI743455-00270-4

PATIENT
  Age: 55 Year
  Sex: Female

DRUGS (8)
  1. METHYLPREDNISOLONE SODIUM SUCCINATE [Suspect]
     Active Substance: METHYLPREDNISOLONE SODIUM SUCCINATE
     Indication: Colitis
     Dosage: 1 MG/KG
     Route: 042
     Dates: start: 2023, end: 2023
  2. METHYLPREDNISOLONE SODIUM SUCCINATE [Suspect]
     Active Substance: METHYLPREDNISOLONE SODIUM SUCCINATE
     Dosage: 2 MG/KG (HIGH-DOSE, GRADUALLY REDUCED AND EVENTUALLY STOPPED AFTER 4 WEEKS)
     Route: 042
     Dates: start: 2023
  3. INFLIXIMAB [Suspect]
     Active Substance: INFLIXIMAB
     Indication: Colitis
     Dosage: 2 DF (STARTED IN WEEK FOUR OF ADMISSION, ADMINISTERED TWICE, ONE WEEK APART)
     Dates: start: 2023
  4. INFLIXIMAB [Suspect]
     Active Substance: INFLIXIMAB
     Indication: Hepatitis
  5. MYCOPHENOLATE MOFETIL [Suspect]
     Active Substance: MYCOPHENOLATE MOFETIL
     Indication: Colitis
     Dosage: 1 G, 2X/DAY (STARTED ON DAY 5)
     Dates: start: 2023
  6. COTRIMOXAZOLE [Concomitant]
     Active Substance: SULFAMETHOXAZOLE\TRIMETHOPRIM
     Indication: Prophylaxis
     Dosage: UNK
     Dates: start: 2023
  7. CHLORAMPHENICOL [Concomitant]
     Active Substance: CHLORAMPHENICOL
     Indication: Keratitis
     Dosage: UNK
     Route: 047
     Dates: start: 2023
  8. CASPOFUNGIN [Concomitant]
     Active Substance: CASPOFUNGIN
     Indication: Antifungal prophylaxis
     Dates: start: 2023

REACTIONS (5)
  - Herpes simplex [Unknown]
  - Enterococcal infection [Unknown]
  - Clostridial infection [Unknown]
  - Mastoiditis [Unknown]
  - Device related infection [Unknown]

NARRATIVE: CASE EVENT DATE: 20240101
